FAERS Safety Report 11229183 (Version 1)
Quarter: 2015Q2

REPORT INFORMATION
  Report Type: Spontaneous
  Country: US (occurrence: US)
  Receive Date: 20150630
  Receipt Date: 20150630
  Transmission Date: 20150821
  Serious: Yes (Other)
  Sender: FDA-Public Use
  Company Number: US-TEVA-574434USA

PATIENT
  Age: 49 Year
  Sex: Female
  Weight: 67.19 kg

DRUGS (2)
  1. PROAIR HFA [Suspect]
     Active Substance: ALBUTEROL SULFATE
     Indication: DYSPNOEA
     Dosage: 2 PUFFS
     Dates: start: 20150624
  2. PROAIR HFA [Suspect]
     Active Substance: ALBUTEROL SULFATE
     Indication: BRONCHITIS
     Dates: start: 201503, end: 2015

REACTIONS (7)
  - Dyspnoea [Unknown]
  - Tenderness [Not Recovered/Not Resolved]
  - Coating in mouth [Unknown]
  - Local swelling [Not Recovered/Not Resolved]
  - Cough [Unknown]
  - Pharyngeal oedema [Not Recovered/Not Resolved]
  - Ear congestion [Not Recovered/Not Resolved]

NARRATIVE: CASE EVENT DATE: 20150624
